FAERS Safety Report 25116341 (Version 1)
Quarter: 2025Q1

REPORT INFORMATION
  Report Type: Spontaneous
  Country: GB (occurrence: GB)
  Receive Date: 20250325
  Receipt Date: 20250325
  Transmission Date: 20250409
  Serious: Yes (Other)
  Sender: AUROBINDO
  Company Number: GB-MHRA-TPP26268139C22275880YC1741363323573

PATIENT
  Age: 72 Year
  Sex: Female
  Weight: 74 kg

DRUGS (10)
  1. ROSUVASTATIN [Suspect]
     Active Substance: ROSUVASTATIN
     Indication: Ill-defined disorder
     Dosage: 1 DOSAGE FORM, ONCE A DAY [ONE TO BE TAKEN EACH DAY FOR LOWERING CHOLESTER...]
     Route: 065
     Dates: start: 20240627
  2. PROCHLORPERAZINE [Concomitant]
     Active Substance: PROCHLORPERAZINE
     Indication: Ill-defined disorder
     Dosage: 1 DOSAGE FORM, 3 TIMES A DAY [TAKE ONE UP TO 3 TIMES DAILY WHEN REQUIRED]
     Route: 065
     Dates: start: 20250220
  3. INDAPAMIDE [Concomitant]
     Active Substance: INDAPAMIDE
     Indication: Ill-defined disorder
     Dosage: 1 DOSAGE FORM, ONCE A DAY [TAKE ONE EACH MORNING]
     Route: 065
     Dates: start: 20250128
  4. SPIRONOLACTONE [Concomitant]
     Active Substance: SPIRONOLACTONE
     Indication: Ill-defined disorder
     Dosage: 1 DOSAGE FORM, ONCE A DAY [ONE TO BE TAKEN EACH DAY IN THE MORNING AND WIT...]
     Route: 065
     Dates: start: 20240627
  5. VERAPAMIL HYDROCHLORIDE [Concomitant]
     Active Substance: VERAPAMIL HYDROCHLORIDE
     Indication: Ill-defined disorder
     Dosage: 1 DOSAGE FORM, TWO TIMES A DAY [TAKE ONE TABLET TWICE DAILY]
     Route: 065
     Dates: start: 20240627
  6. ASPIRIN [Concomitant]
     Active Substance: ASPIRIN
     Indication: Ill-defined disorder
     Dosage: 1 DOSAGE FORM, ONCE A DAY [1 TO BE TAKEN EACH MORNING]
     Route: 065
     Dates: start: 20240801
  7. OMEPRAZOLE [Concomitant]
     Active Substance: OMEPRAZOLE
     Indication: Ill-defined disorder
     Dosage: 1 DOSAGE FORM, TWO TIMES A DAY [TAKE ONE TWICE DAILY]
     Route: 065
     Dates: start: 20240802
  8. BECLOMETHASONE DIPROPIONATE [Concomitant]
     Active Substance: BECLOMETHASONE DIPROPIONATE
     Indication: Ill-defined disorder
     Dosage: 2 DOSAGE FORM, TWO TIMES A DAY [TWO PUFFS TWICE DAILY]
     Route: 065
     Dates: start: 20241111
  9. IBUPROFEN [Concomitant]
     Active Substance: IBUPROFEN
     Indication: Ill-defined disorder
     Dosage: UNK UNK, 3 TIMES A DAY [APPLY UP TO THREE TIMES A DAY]
     Route: 065
     Dates: start: 20250220
  10. ATORVASTATIN [Concomitant]
     Active Substance: ATORVASTATIN
     Indication: Ill-defined disorder
     Route: 065
     Dates: start: 20250307

REACTIONS (1)
  - Cough [Recovered/Resolved]
